FAERS Safety Report 25598080 (Version 1)
Quarter: 2025Q3

REPORT INFORMATION
  Report Type: Spontaneous
  Country: IL (occurrence: IL)
  Receive Date: 20250723
  Receipt Date: 20250723
  Transmission Date: 20251020
  Serious: Yes (Death)
  Sender: ALNYLAM PHARMACEUTICALS
  Company Number: IL-ALNYLAM PHARMACEUTICALS, INC.-ALN-2025-004483

PATIENT

DRUGS (2)
  1. OXLUMO [Suspect]
     Active Substance: LUMASIRAN
     Indication: Primary hyperoxaluria
     Dosage: 3 MILLIGRAM/KILOGRAM, Q3M
     Route: 058
  2. OXLUMO [Suspect]
     Active Substance: LUMASIRAN
     Dosage: 3 MILLIGRAM/KILOGRAM, Q3M
     Route: 058
     Dates: start: 20240117, end: 20240117

REACTIONS (3)
  - Cardio-respiratory arrest [Fatal]
  - Hyperkalaemia [Fatal]
  - Arrhythmia [Fatal]
